FAERS Safety Report 6302112-4 (Version None)
Quarter: 2009Q3

REPORT INFORMATION
  Report Type: 
  Country: None (occurrence: None)
  Receive Date: 20090807
  Receipt Date: 20090730
  Transmission Date: 20100115
  Serious: Yes (Other)
  Sender: FDA-Public Use
  Company Number: GT-ABBOTT-09P-069-0588569-00

PATIENT
  Age: 42 Year
  Sex: Female

DRUGS (6)
  1. SEVOFLURANE [Suspect]
     Indication: ANAESTHESIA
     Route: 055
     Dates: start: 20090728, end: 20090728
  2. SEVOFLURANE [Suspect]
     Indication: SURGERY
  3. FENTANYL [Concomitant]
     Indication: ANAESTHESIA
     Dosage: 100MG DURING SURGERY PROCEDURE
     Dates: start: 20090728, end: 20090728
  4. FENTANYL [Concomitant]
     Indication: SURGERY
  5. PROPOFOL [Concomitant]
     Indication: ANAESTHESIA
     Dosage: 150MG DURING SURGERY PROCEDURE
     Dates: start: 20090728, end: 20090728
  6. PROPOFOL [Concomitant]
     Indication: SURGERY

REACTIONS (1)
  - THERAPEUTIC RESPONSE DECREASED [None]
